FAERS Safety Report 18023646 (Version 2)
Quarter: 2020Q4

REPORT INFORMATION
  Report Type: Report from Study
  Country: US (occurrence: US)
  Receive Date: 20200715
  Receipt Date: 20201023
  Transmission Date: 20210113
  Serious: Yes (Other)
  Sender: FDA-Public Use
  Company Number: US-GLAXOSMITHKLINE-US2020AMR127247

PATIENT
  Sex: Female

DRUGS (3)
  1. NIRAPARIB [Suspect]
     Active Substance: NIRAPARIB
     Indication: OVARIAN CANCER
     Dosage: 300 MG, QD (300MG-OTHER SOURCE)
     Route: 065
     Dates: start: 201811
  2. NIRAPARIB [Suspect]
     Active Substance: NIRAPARIB
     Dosage: 200 MG, QD
     Dates: start: 20200820
  3. NIRAPARIB [Suspect]
     Active Substance: NIRAPARIB
     Dosage: 200 MG, QD (200MG-OTHER SOURCE)
     Route: 065
     Dates: start: 201902

REACTIONS (7)
  - Red blood cell count decreased [Unknown]
  - Asthenia [Unknown]
  - Constipation [Unknown]
  - Platelet count decreased [Unknown]
  - Ageusia [Unknown]
  - Taste disorder [Unknown]
  - Deafness [Unknown]
